FAERS Safety Report 9999738 (Version 1)
Quarter: 2014Q1

REPORT INFORMATION
  Report Type: Spontaneous
  Country: US (occurrence: US)
  Receive Date: 20140312
  Receipt Date: 20140312
  Transmission Date: 20141002
  Serious: Yes (Other)
  Sender: FDA-Public Use
  Company Number: US-RB-063690-14

PATIENT
  Age: 20 Year
  Sex: Female

DRUGS (2)
  1. MUCINEX CHILD COUGH CHERRY LIQUID (GUAIFENESIN) [Suspect]
     Indication: PRODUCT USED FOR UNKNOWN INDICATION
     Dosage: TOOK A 10ML DOSE 2 WEEKS AGO ON AN UNKNOWN DATE
     Route: 048
  2. MUCINEX CHILD COUGH CHERRY LIQUID (DEXTROMETHORPHAN HYDROBROMIDE) [Suspect]

REACTIONS (3)
  - Anxiety [Recovered/Resolved]
  - Agitation [Recovered/Resolved]
  - Discomfort [Recovered/Resolved]
